FAERS Safety Report 25382688 (Version 1)
Quarter: 2025Q2

REPORT INFORMATION
  Report Type: Report from Study
  Country: AR (occurrence: AR)
  Receive Date: 20250601
  Receipt Date: 20250601
  Transmission Date: 20250716
  Serious: Yes (Death, Hospitalization)
  Sender: BIOGEN
  Company Number: AR-BIOGEN-2025BI01312531

PATIENT
  Age: 73 Year
  Sex: Female

DRUGS (1)
  1. TECFIDERA [Suspect]
     Active Substance: DIMETHYL FUMARATE
     Indication: Multiple sclerosis
     Dosage: LAST ADMINISTRATION FEB2025
     Route: 050
     Dates: start: 20190605, end: 202502

REACTIONS (2)
  - Death [Fatal]
  - Pneumonia [Recovered/Resolved]

NARRATIVE: CASE EVENT DATE: 20250501
